FAERS Safety Report 11553093 (Version 4)
Quarter: 2017Q3

REPORT INFORMATION
  Report Type: Report from Study
  Country: JP (occurrence: JP)
  Receive Date: 20150925
  Receipt Date: 20170811
  Transmission Date: 20171127
  Serious: Yes (Hospitalization, Disabling, Other)
  Sender: FDA-Public Use
  Company Number: JP-ASTELLAS-2008JP005364

PATIENT
  Age: 45 Year
  Sex: Female
  Weight: 36 kg

DRUGS (53)
  1. PREDNISOLONE. [Suspect]
     Active Substance: PREDNISOLONE
     Route: 048
     Dates: start: 20081121, end: 20160208
  2. IDOMETHINE [Concomitant]
     Active Substance: INDOMETHACIN
     Indication: SYSTEMIC LUPUS ERYTHEMATOSUS
     Dosage: UNK UNK, UNKNOWN FREQ.
     Route: 061
     Dates: start: 20080417, end: 20080621
  3. MOHRUS L [Concomitant]
     Active Substance: KETOPROFEN
     Indication: SYSTEMIC LUPUS ERYTHEMATOSUS
     Dosage: ADEQUATE DOSE
     Route: 061
     Dates: end: 20090828
  4. MUCOSOLVAN [Concomitant]
     Active Substance: AMBROXOL HYDROCHLORIDE
     Indication: PHARYNGITIS
     Route: 048
     Dates: start: 20070717, end: 20070723
  5. DIOVAN [Concomitant]
     Active Substance: VALSARTAN
     Indication: HYPERTENSION
     Route: 048
     Dates: start: 20101224
  6. TAKEPRON [Concomitant]
     Active Substance: LANSOPRAZOLE
     Indication: PROPHYLAXIS
     Route: 048
     Dates: start: 20120209
  7. MINOMYCIN [Concomitant]
     Active Substance: MINOCYCLINE HYDROCHLORIDE
     Indication: PHARYNGITIS
     Route: 048
     Dates: start: 20070717, end: 20070723
  8. PREDNISOLONE. [Suspect]
     Active Substance: PREDNISOLONE
     Indication: LUPUS NEPHRITIS
     Route: 048
     Dates: end: 20080403
  9. HUSCODE [Concomitant]
     Active Substance: CHLORPHENIRAMINE MALEAT\DIHYDROCODEINE PHOSPHATE\METHYLEPHEDRINE HYDROCHLORIDE, DL-
     Indication: ASTHMA
     Route: 048
     Dates: start: 20091113, end: 20091119
  10. MUCOSOLVAN [Concomitant]
     Active Substance: AMBROXOL HYDROCHLORIDE
     Route: 048
     Dates: start: 20101012, end: 20101018
  11. CONIEL [Concomitant]
     Active Substance: BENIDIPINE HYDROCHLORIDE
     Indication: HYPERTENSION
     Route: 048
     Dates: start: 20101210, end: 20110124
  12. CALONAL [Concomitant]
     Active Substance: ACETAMINOPHEN
     Indication: INFLUENZA
     Dosage: ADEQUATE DOSE
     Route: 048
     Dates: start: 20090130, end: 20090203
  13. FLOMOX                             /01418603/ [Concomitant]
     Active Substance: CEFCAPENE PIVOXIL HYDROCHLORIDE HYDRATE
     Indication: PHARYNGITIS
     Route: 048
     Dates: start: 20091113, end: 20091119
  14. FOSAMAC [Concomitant]
     Active Substance: ALENDRONATE SODIUM
     Indication: OSTEOPOROSIS
     Route: 048
     Dates: start: 20071108, end: 20130412
  15. BENET [Concomitant]
     Active Substance: RISEDRONATE SODIUM
     Route: 048
     Dates: start: 20130504, end: 20151001
  16. KLARICID                           /00984601/ [Concomitant]
     Active Substance: CLARITHROMYCIN
     Indication: ASTHMA
     Route: 048
     Dates: start: 20101012, end: 20101018
  17. ALLELOCK [Concomitant]
     Active Substance: OLOPATADINE HYDROCHLORIDE
     Indication: RHINITIS ALLERGIC
     Route: 048
     Dates: start: 20080207, end: 20080307
  18. TAMIFLU [Concomitant]
     Active Substance: OSELTAMIVIR PHOSPHATE
     Indication: INFLUENZA
     Route: 048
     Dates: start: 20090130, end: 20090203
  19. MOHRUS L [Concomitant]
     Active Substance: KETOPROFEN
     Dosage: ADEQUATE DOSE
     Route: 061
     Dates: start: 20141202, end: 20150406
  20. HOKUNALIN                          /00654901/ [Concomitant]
     Active Substance: TULOBUTEROL
     Indication: ASTHMA
     Route: 062
     Dates: start: 20101012, end: 20101018
  21. POLARAMINE [Concomitant]
     Active Substance: DEXCHLORPHENIRAMINE MALEATE
     Indication: RHINITIS ALLERGIC
     Route: 048
     Dates: start: 20080207, end: 20080307
  22. PREDNISOLONE. [Suspect]
     Active Substance: PREDNISOLONE
     Route: 048
     Dates: start: 20080822, end: 20081120
  23. ONEALFA [Concomitant]
     Active Substance: ALFACALCIDOL
     Indication: PRODUCT USED FOR UNKNOWN INDICATION
     Dosage: 0.5 UG, ONCE DAILY
     Route: 048
  24. BAYASPIRIN [Concomitant]
     Active Substance: ASPIRIN
     Indication: PRODUCT USED FOR UNKNOWN INDICATION
     Route: 048
  25. IDOMETHINE [Concomitant]
     Active Substance: INDOMETHACIN
     Dosage: UNK UNK, UNKNOWN FREQ.
     Route: 061
     Dates: start: 20100812, end: 20110614
  26. BENET [Concomitant]
     Active Substance: RISEDRONATE SODIUM
     Indication: OSTEOPOROSIS
     Route: 048
     Dates: end: 20071107
  27. MUCOSOLVAN [Concomitant]
     Active Substance: AMBROXOL HYDROCHLORIDE
     Indication: ASTHMA
     Route: 048
     Dates: start: 20080417, end: 20080424
  28. TRAMCET [Concomitant]
     Active Substance: ACETAMINOPHEN\TRAMADOL
     Indication: SYSTEMIC LUPUS ERYTHEMATOSUS
     Route: 048
     Dates: start: 20150507, end: 20160115
  29. ALLELOCK [Concomitant]
     Active Substance: OLOPATADINE HYDROCHLORIDE
     Indication: SEASONAL ALLERGY
     Route: 048
     Dates: start: 20100226, end: 20100426
  30. LOXONIN [Concomitant]
     Active Substance: LOXOPROFEN SODIUM
     Indication: PHARYNGITIS
     Route: 048
     Dates: start: 20091113, end: 20091119
  31. PREDNISOLONE. [Suspect]
     Active Substance: PREDNISOLONE
     Route: 048
     Dates: start: 20080404, end: 20080621
  32. ASPARA-CA [Concomitant]
     Active Substance: CALCIUM ASPARTATE
     Indication: PRODUCT USED FOR UNKNOWN INDICATION
     Route: 048
  33. MS REISHIPPU [Concomitant]
     Active Substance: CAMPHOR\MENTHOL\METHYL SALICYLATE
     Indication: SYSTEMIC LUPUS ERYTHEMATOSUS
     Dosage: ADEQUATE DOSE
     Route: 061
     Dates: start: 20080703, end: 20090828
  34. MS REISHIPPU [Concomitant]
     Active Substance: CAMPHOR\MENTHOL\METHYL SALICYLATE
     Dosage: ADEQUATE DOSE
     Route: 061
     Dates: end: 20160115
  35. HUSCODE [Concomitant]
     Active Substance: CHLORPHENIRAMINE MALEAT\DIHYDROCODEINE PHOSPHATE\METHYLEPHEDRINE HYDROCHLORIDE, DL-
     Route: 048
     Dates: start: 20101012, end: 20101018
  36. HUSCODE [Concomitant]
     Active Substance: CHLORPHENIRAMINE MALEAT\DIHYDROCODEINE PHOSPHATE\METHYLEPHEDRINE HYDROCHLORIDE, DL-
     Indication: PHARYNGITIS
     Route: 048
     Dates: start: 20080417, end: 20080424
  37. NORVASC [Concomitant]
     Active Substance: AMLODIPINE BESYLATE
     Route: 048
     Dates: start: 20110325, end: 20160115
  38. MOBIC [Concomitant]
     Active Substance: MELOXICAM
     Indication: SYSTEMIC LUPUS ERYTHEMATOSUS
     Route: 048
     Dates: start: 20140203, end: 20150406
  39. PREDNISOLONE. [Suspect]
     Active Substance: PREDNISOLONE
     Route: 048
     Dates: start: 20160209
  40. GASTER [Concomitant]
     Active Substance: FAMOTIDINE
     Indication: PROPHYLAXIS
     Route: 048
     Dates: end: 20120208
  41. PERSANTIN [Concomitant]
     Active Substance: DIPYRIDAMOLE
     Indication: LUPUS NEPHRITIS
     Route: 048
  42. MOHRUS L [Concomitant]
     Active Substance: KETOPROFEN
     Dosage: ADEQUATE DOSE
     Route: 061
     Dates: start: 20101115, end: 20130603
  43. HYPEN                              /00613801/ [Concomitant]
     Active Substance: ETODOLAC
     Indication: SYSTEMIC LUPUS ERYTHEMATOSUS
     Route: 048
     Dates: start: 20080228, end: 20080403
  44. HYPEN                              /00613801/ [Concomitant]
     Active Substance: ETODOLAC
     Route: 048
     Dates: start: 20080918, end: 20100716
  45. HUSCODE [Concomitant]
     Active Substance: CHLORPHENIRAMINE MALEAT\DIHYDROCODEINE PHOSPHATE\METHYLEPHEDRINE HYDROCHLORIDE, DL-
     Indication: PHARYNGITIS
     Route: 048
     Dates: start: 20070717, end: 20070723
  46. NORVASC [Concomitant]
     Active Substance: AMLODIPINE BESYLATE
     Indication: HYPERTENSION
     Route: 048
     Dates: start: 20110124, end: 20110324
  47. MINOMYCIN [Concomitant]
     Active Substance: MINOCYCLINE HYDROCHLORIDE
     Route: 048
     Dates: start: 20080417, end: 20080424
  48. TACROLIMUS. [Suspect]
     Active Substance: TACROLIMUS
     Indication: LUPUS NEPHRITIS
     Route: 048
     Dates: start: 20070705, end: 20160701
  49. PREDNISOLONE. [Suspect]
     Active Substance: PREDNISOLONE
     Route: 048
     Dates: start: 20080622, end: 20080821
  50. MOHRUS L [Concomitant]
     Active Substance: KETOPROFEN
     Dosage: ADEQUATE DOSE
     Route: 061
     Dates: start: 20150706, end: 20160115
  51. MS REISHIPPU [Concomitant]
     Active Substance: CAMPHOR\MENTHOL\METHYL SALICYLATE
     Dosage: ADEQUATE DOSE
     Route: 061
     Dates: start: 20120522, end: 20131118
  52. NORVASC [Concomitant]
     Active Substance: AMLODIPINE BESYLATE
     Route: 048
     Dates: start: 20160116
  53. POLARAMINE [Concomitant]
     Active Substance: DEXCHLORPHENIRAMINE MALEATE
     Indication: SEASONAL ALLERGY
     Route: 048
     Dates: start: 20100226, end: 20100426

REACTIONS (8)
  - Influenza [Recovered/Resolved]
  - Rhinitis allergic [Recovered/Resolved]
  - Femur fracture [Recovering/Resolving]
  - Pharyngitis [Recovered/Resolved]
  - Hypertension [Not Recovered/Not Resolved]
  - Seasonal allergy [Recovered/Resolved]
  - Pharyngitis [Recovered/Resolved]
  - Asthma [Recovered/Resolved]

NARRATIVE: CASE EVENT DATE: 20070717
